FAERS Safety Report 15407811 (Version 1)
Quarter: 2018Q3

REPORT INFORMATION
  Report Type: Spontaneous
  Country: BR (occurrence: BR)
  Receive Date: 20180920
  Receipt Date: 20180920
  Transmission Date: 20181010
  Serious: Yes (Other)
  Sender: FDA-Public Use
  Company Number: BR-PFIZER INC-2017064922

PATIENT
  Age: 70 Year
  Sex: Female

DRUGS (2)
  1. LORAX [Suspect]
     Active Substance: LORAZEPAM
     Indication: PALPITATIONS
     Dosage: 1 MG, 1X/DAY
     Dates: start: 1978
  2. LORAX [Suspect]
     Active Substance: LORAZEPAM
     Indication: ANXIETY
     Dosage: 1 MG, 3X/DAY

REACTIONS (8)
  - Dependence [Unknown]
  - Hepatic pain [Unknown]
  - Fall [Unknown]
  - Tachycardia [Unknown]
  - Pain in extremity [Unknown]
  - Upper limb fracture [Unknown]
  - Feeling abnormal [Unknown]
  - Hyperhidrosis [Unknown]
